FAERS Safety Report 6193952-3 (Version None)
Quarter: 2009Q2

REPORT INFORMATION
  Report Type: 
  Country: None (occurrence: None)
  Receive Date: 20090518
  Receipt Date: 20090507
  Transmission Date: 20091009
  Serious: Yes (Hospitalization)
  Sender: FDA-Public Use
  Company Number: PHHY2009ZA10738

PATIENT
  Sex: Female
  Weight: 56 kg

DRUGS (2)
  1. ZOMETA [Suspect]
     Indication: BREAST CANCER
     Dosage: 4 MG, UNK
     Dates: start: 20090319
  2. ZOMETA [Suspect]
     Indication: OSTEOPOROSIS

REACTIONS (4)
  - ARTHRALGIA [None]
  - MALAISE [None]
  - OFF LABEL USE [None]
  - PYREXIA [None]
